FAERS Safety Report 8429884-7 (Version None)
Quarter: 2012Q2

REPORT INFORMATION
  Report Type: 
  Country: None (occurrence: None)
  Receive Date: 20120523
  Receipt Date: 20120507
  Transmission Date: 20120825
  Serious: Yes (Other)
  Sender: FDA-Public Use
  Company Number: 2012032234

PATIENT
  Sex: Female
  Weight: 51.2565 kg

DRUGS (3)
  1. PRIVIGEN [Suspect]
     Indication: HYPER IGM SYNDROME
     Dosage: INTRAVENOUS
     Route: 042
     Dates: start: 20120411
  2. DIPHENHYDRAMINE HCL [Concomitant]
  3. ACETAMINOPHEN [Concomitant]

REACTIONS (3)
  - MENINGITIS VIRAL [None]
  - MENINGITIS ASEPTIC [None]
  - ASTHMA [None]
